FAERS Safety Report 7758861-4 (Version None)
Quarter: 2011Q3

REPORT INFORMATION
  Report Type: 
  Country: None (occurrence: None)
  Receive Date: 20110915
  Receipt Date: 20110902
  Transmission Date: 20111222
  Serious: Yes (Hospitalization, Other)
  Sender: FDA-Public Use
  Company Number: KAD201109-000010

PATIENT
  Age: 59 Year
  Sex: Female

DRUGS (10)
  1. RIBAVIRIN [Suspect]
     Indication: PRODUCT USED FOR UNKNOWN INDICATION
     Dates: start: 20110701
  2. CITALOPRAM [Concomitant]
  3. VICTRELIS [Suspect]
     Indication: HEPATITIS C
     Dosage: PER ORAL
     Route: 048
     Dates: start: 20110701
  4. HUMULIN R [Concomitant]
  5. DIOVAN [Concomitant]
  6. PEG-INTRON [Suspect]
     Indication: PRODUCT USED FOR UNKNOWN INDICATION
  7. NOVOLOG [Concomitant]
  8. SEROQUEL [Concomitant]
  9. BUPROPION [Concomitant]
  10. HYDROCHLOROTHIAZIDE [Concomitant]

REACTIONS (7)
  - DELIRIUM [None]
  - PLATELET COUNT DECREASED [None]
  - HALLUCINATION [None]
  - DEHYDRATION [None]
  - NAUSEA [None]
  - BLOOD GLUCOSE ABNORMAL [None]
  - EPISTAXIS [None]
